FAERS Safety Report 9060067 (Version 1)
Quarter: 2013Q1

REPORT INFORMATION
  Report Type: Spontaneous
  Country: US (occurrence: None)
  Receive Date: 20130207
  Receipt Date: 20130207
  Transmission Date: 20140127
  Serious: Yes (Other)
  Sender: FDA-Public Use
  Company Number: None

PATIENT
  Age: 34 Year
  Sex: Female
  Weight: 77.3 kg

DRUGS (8)
  1. ESCITALOPRAM [Suspect]
     Indication: OBSESSIVE-COMPULSIVE DISORDER
     Route: 048
     Dates: start: 20130116, end: 20130123
  2. ESCITALOPRAM [Suspect]
     Indication: MAJOR DEPRESSION
     Route: 048
     Dates: start: 20130116, end: 20130123
  3. GEODON [Concomitant]
  4. WELLBUTRIN GENERIC [Concomitant]
  5. PROZAC GENERIC [Concomitant]
  6. LAMICTAL GENERIC [Concomitant]
  7. SPIRONOLACTONE GENERICM [Concomitant]
  8. LUNESTA [Concomitant]

REACTIONS (3)
  - Depression [None]
  - Suicidal ideation [None]
  - Product substitution issue [None]
